FAERS Safety Report 12779258 (Version 1)
Quarter: 2016Q3

REPORT INFORMATION
  Report Type: Spontaneous
  Country: US (occurrence: US)
  Receive Date: 20160923
  Receipt Date: 20160923
  Transmission Date: 20161109
  Serious: No
  Sender: FDA-Public Use
  Company Number: None

PATIENT
  Age: 65 Year
  Sex: Male
  Weight: 100.3 kg

DRUGS (1)
  1. BUPRENORPHINE/NALOXONE [Suspect]
     Active Substance: BUPRENORPHINE\NALOXONE
     Dosage: MG PO
     Route: 048
     Dates: start: 20160825

REACTIONS (1)
  - Drug ineffective [None]

NARRATIVE: CASE EVENT DATE: 20160825
